FAERS Safety Report 6690480-3 (Version None)
Quarter: 2010Q2

REPORT INFORMATION
  Report Type: 
  Country: None (occurrence: None)
  Receive Date: 20100421
  Receipt Date: 20100415
  Transmission Date: 20101027
  Serious: Yes (Hospitalization)
  Sender: FDA-Public Use
  Company Number: US-RB-000082-10

PATIENT
  Age: 48 Year
  Sex: Male

DRUGS (4)
  1. SUBOXONE [Suspect]
     Indication: BACK PAIN
     Route: 060
     Dates: start: 20070101, end: 20081001
  2. SUBOXONE [Suspect]
     Route: 065
     Dates: start: 20081101
  3. BENZODIAZEPINES [Suspect]
     Indication: DRUG USE FOR UNKNOWN INDICATION
     Dosage: UNKNOWN DOSING DETAILS
     Route: 065
  4. ALCOHOL [Suspect]
     Indication: DRUG USE FOR UNKNOWN INDICATION
     Dosage: UNKNOWN DETAILS
     Route: 065

REACTIONS (6)
  - GAIT DISTURBANCE [None]
  - HEPATIC ENZYME ABNORMAL [None]
  - HORDEOLUM [None]
  - PAIN [None]
  - PEYRONIE'S DISEASE [None]
  - STRESS [None]
